FAERS Safety Report 18301398 (Version 1)
Quarter: 2020Q3

REPORT INFORMATION
  Report Type: Spontaneous
  Country: US (occurrence: US)
  Receive Date: 20200923
  Receipt Date: 20200923
  Transmission Date: 20201103
  Serious: No
  Sender: FDA-Public Use
  Company Number: US-RECKITT BENCKISER HEALTHCARE INT LIMITED-RB-91404-2019

PATIENT
  Age: 67 Year
  Sex: Male

DRUGS (1)
  1. MUCINEX [Suspect]
     Active Substance: GUAIFENESIN
     Indication: CHRONIC SINUSITIS
     Dosage: 600 MILLIGRAM, QD
     Route: 065
     Dates: start: 201909, end: 2019

REACTIONS (4)
  - Hypoaesthesia [Recovered/Resolved]
  - Incorrect product administration duration [Recovered/Resolved]
  - Gastrooesophageal reflux disease [Recovered/Resolved]
  - Burning sensation [Recovered/Resolved]

NARRATIVE: CASE EVENT DATE: 201909
